FAERS Safety Report 8515265 (Version 3)
Quarter: 2012Q4

REPORT INFORMATION
  Report Type: 
  Country: JP (occurrence: JP)
  Receive Date: 20120417
  Receipt Date: 20121116
  Transmission Date: 20130627
  Serious: Yes (Life-Threatening, Hospitalization)
  Sender: FDA-Public Use
  Company Number: JP-JNJFOC-20120403505

PATIENT
  Age: 73 None
  Sex: Female
  Weight: 64 kg

DRUGS (4)
  1. REMICADE [Suspect]
     Indication: RHEUMATOID ARTHRITIS
     Route: 042
     Dates: start: 20061016
  2. REMICADE [Suspect]
     Indication: RHEUMATOID ARTHRITIS
     Dosage: 28 infusions on unspecified dates
     Route: 042
     Dates: start: 20101209
  3. REMICADE [Suspect]
     Indication: RHEUMATOID ARTHRITIS
     Dosage: 30th dose
     Route: 042
     Dates: start: 20110203
  4. METHOTREXATE [Suspect]
     Indication: RHEUMATOID ARTHRITIS
     Dosage: 4 to 6 mg/week
     Route: 048
     Dates: start: 20050119, end: 20110506

REACTIONS (2)
  - Lymphoma [Not Recovered/Not Resolved]
  - Hypertension [Unknown]
